FAERS Safety Report 7680893-5 (Version None)
Quarter: 2011Q3

REPORT INFORMATION
  Report Type: 
  Country: None (occurrence: None)
  Receive Date: 20110812
  Receipt Date: 20110801
  Transmission Date: 20111222
  Serious: Yes (Hospitalization, Other)
  Sender: FDA-Public Use
  Company Number: JP-PFIZER INC-2011162141

PATIENT
  Age: 57 Year
  Sex: Female

DRUGS (4)
  1. ACTOS [Concomitant]
     Dosage: UNK
     Dates: start: 20090218, end: 20110705
  2. MIGLITOL [Suspect]
     Indication: DIABETES MELLITUS
     Dosage: 50 MG, 3X/DAY
     Route: 048
     Dates: start: 20110531, end: 20110624
  3. NEO-MERCAZOLE TAB [Concomitant]
     Dosage: UNK
     Dates: start: 20090227
  4. LIPITOR [Concomitant]
     Dosage: UNK
     Dates: start: 20101102, end: 20110705

REACTIONS (6)
  - MALIGNANT ASCITES [None]
  - PANCREATIC CARCINOMA [None]
  - ABDOMINAL PAIN [None]
  - INTESTINAL OBSTRUCTION [None]
  - FLATULENCE [None]
  - DIARRHOEA [None]
